FAERS Safety Report 12632815 (Version 2)
Quarter: 2016Q3

REPORT INFORMATION
  Report Type: Spontaneous
  Country: US (occurrence: US)
  Receive Date: 20160808
  Receipt Date: 20160808
  Transmission Date: 20161109
  Serious: No
  Sender: FDA-Public Use
  Company Number: US-BEH-2015057068

PATIENT
  Sex: Female
  Weight: 112 kg

DRUGS (24)
  1. EPIPEN [Concomitant]
     Active Substance: EPINEPHRINE
  2. LUNESTA [Concomitant]
     Active Substance: ESZOPICLONE
  3. LISINOPRIL. [Concomitant]
     Active Substance: LISINOPRIL
  4. VALTREX [Concomitant]
     Active Substance: VALACYCLOVIR HYDROCHLORIDE
  5. ZYRTEC [Concomitant]
     Active Substance: CETIRIZINE HYDROCHLORIDE
  6. ARMOUR THYROID [Concomitant]
     Active Substance: THYROID, PORCINE
  7. HIZENTRA [Suspect]
     Active Substance: HUMAN IMMUNOGLOBULIN G
     Route: 058
  8. LIDOCAINE/PRILOCAINE [Concomitant]
     Active Substance: LIDOCAINE\PRILOCAINE
  9. DIFLUCAN [Concomitant]
     Active Substance: FLUCONAZOLE
  10. ACETAMINOPHEN. [Concomitant]
     Active Substance: ACETAMINOPHEN
  11. DIPHENHYDRAMINE. [Concomitant]
     Active Substance: DIPHENHYDRAMINE
  12. TRAMADOL. [Concomitant]
     Active Substance: TRAMADOL
  13. HIZENTRA [Suspect]
     Active Substance: HUMAN IMMUNOGLOBULIN G
     Indication: IMMUNODEFICIENCY COMMON VARIABLE
     Route: 058
  14. HIZENTRA [Suspect]
     Active Substance: HUMAN IMMUNOGLOBULIN G
     Route: 058
  15. NALTREXONE [Concomitant]
     Active Substance: NALTREXONE
  16. IMIDAZOLE DERIVATIVES [Concomitant]
  17. VITAMIN B12 [Concomitant]
     Active Substance: CYANOCOBALAMIN
  18. FLEXERIL [Concomitant]
     Active Substance: CYCLOBENZAPRINE HYDROCHLORIDE
  19. COQ10 [Concomitant]
     Active Substance: UBIDECARENONE
  20. PROVIGIL [Concomitant]
     Active Substance: MODAFINIL
  21. CHOLESTEROL POWDER [Concomitant]
  22. NADOLOL. [Concomitant]
     Active Substance: NADOLOL
  23. NALTREXONE [Concomitant]
     Active Substance: NALTREXONE
  24. LIDOCAINE PATCH [Concomitant]
     Active Substance: LIDOCAINE

REACTIONS (1)
  - Gastroenteritis viral [Recovered/Resolved]
